FAERS Safety Report 4551012-9 (Version None)
Quarter: 2005Q1

REPORT INFORMATION
  Report Type: 
  Country: None (occurrence: None)
  Receive Date: 20050113
  Receipt Date: 20040728
  Transmission Date: 20050727
  Serious: No
  Sender: FDA-Public Use
  Company Number: US-BRISTOL-MYERS SQUIBB COMPANY-12654844

PATIENT
  Age: 44 Year
  Sex: Male

DRUGS (1)
  1. CARDIOLITE [Suspect]
     Indication: EXERCISE ELECTROCARDIOGRAM
     Dosage: ROUTE: ^INJECTION^
     Route: 051
     Dates: start: 20040715, end: 20040715

REACTIONS (1)
  - INJECTION SITE RASH [None]
